FAERS Safety Report 20814400 (Version 1)
Quarter: 2022Q2

REPORT INFORMATION
  Report Type: Spontaneous
  Country: US (occurrence: US)
  Receive Date: 20220511
  Receipt Date: 20220511
  Transmission Date: 20220720
  Serious: No
  Sender: FDA-Public Use
  Company Number: US-PFIZER INC-202200579062

PATIENT
  Age: 42 Year
  Sex: Female

DRUGS (1)
  1. XELJANZ XR [Suspect]
     Active Substance: TOFACITINIB CITRATE
     Dosage: 11 MG
     Dates: start: 202201

REACTIONS (6)
  - Nasopharyngitis [Unknown]
  - Palpitations [Unknown]
  - Tremor [Unknown]
  - Dry mouth [Unknown]
  - Decreased appetite [Unknown]
  - Product dose omission issue [Unknown]
